FAERS Safety Report 9647792 (Version 3)
Quarter: 2013Q4

REPORT INFORMATION
  Report Type: Spontaneous
  Country: CA (occurrence: CA)
  Receive Date: 20131028
  Receipt Date: 20131112
  Transmission Date: 20140711
  Serious: Yes (Hospitalization)
  Sender: FDA-Public Use
  Company Number: CA-JNJFOC-20130813420

PATIENT
  Age: 28 Year
  Sex: Male
  Weight: 83 kg

DRUGS (7)
  1. RISPERDAL CONSTA [Suspect]
     Indication: SCHIZOPHRENIA
     Route: 030
     Dates: start: 20070607
  2. RISPERDAL [Suspect]
     Indication: PRODUCT USED FOR UNKNOWN INDICATION
     Dosage: HOUR OF SLEEP AT TIME OF RISPERIDONE LONG ACTING INJECTION
     Route: 048
  3. TYLENOL [Suspect]
     Indication: PRODUCT USED FOR UNKNOWN INDICATION
     Dosage: 1 TO 2 TABLETS
     Route: 065
  4. NICORETTE [Suspect]
     Route: 065
  5. NICORETTE [Suspect]
     Indication: PRODUCT USED FOR UNKNOWN INDICATION
     Route: 065
  6. SERAX [Concomitant]
     Dosage: 15-30 MG
     Route: 065
  7. COLACE [Concomitant]
     Dosage: 1 TO 2 TABLETS
     Route: 065

REACTIONS (1)
  - Urticaria [Recovered/Resolved]
